FAERS Safety Report 10569924 (Version 1)
Quarter: 2014Q4

REPORT INFORMATION
  Report Type: Spontaneous
  Country: US (occurrence: None)
  Receive Date: 20141106
  Receipt Date: 20141106
  Transmission Date: 20150529
  Serious: Yes (Other)
  Sender: FDA-Public Use
  Company Number: None

PATIENT
  Age: 67 Year
  Sex: Male
  Weight: 74.84 kg

DRUGS (2)
  1. TESTOSTERONE. [Suspect]
     Active Substance: TESTOSTERONE
     Indication: BLOOD TESTOSTERONE DECREASED
     Dosage: ONE ML IM EVERY 2 WEEKS, EVERY 2 WEEKS, INTO THE MUSCLE
     Route: 030
     Dates: start: 20110901, end: 20141101
  2. TESTOSTERONE. [Suspect]
     Active Substance: TESTOSTERONE
     Indication: HYPOGONADISM
     Dosage: ONE ML IM EVERY 2 WEEKS, EVERY 2 WEEKS, INTO THE MUSCLE
     Route: 030
     Dates: start: 20110901, end: 20141101

REACTIONS (3)
  - Haemoglobin increased [None]
  - Coronary arterial stent insertion [None]
  - Haematocrit increased [None]

NARRATIVE: CASE EVENT DATE: 20141103
